FAERS Safety Report 4588099-3 (Version None)
Quarter: 2005Q1

REPORT INFORMATION
  Report Type: 
  Country: None (occurrence: None)
  Receive Date: 20050216
  Receipt Date: 20050128
  Transmission Date: 20050727
  Serious: Yes (Death, Other)
  Sender: FDA-Public Use
  Company Number: JP_050205759

PATIENT
  Age: 32 Year
  Sex: Male

DRUGS (5)
  1. ONCOVIN [Suspect]
     Indication: ACUTE LYMPHOCYTIC LEUKAEMIA
     Dosage: 1.3 MG/M2 OTHER
  2. CYCLOPHOSPHAMIDE [Concomitant]
  3. DAUNORUBICIN HCL [Concomitant]
  4. IMATINIB [Concomitant]
  5. PREDNISOLONE SODIUM SUCCINATE INJ [Concomitant]

REACTIONS (5)
  - CHEST PAIN [None]
  - DYSPNOEA [None]
  - LUNG INFILTRATION [None]
  - PLATELET COUNT DECREASED [None]
  - PULMONARY HAEMORRHAGE [None]
